FAERS Safety Report 21773023 (Version 2)
Quarter: 2025Q3

REPORT INFORMATION
  Report Type: Spontaneous
  Country: EU (occurrence: EU)
  Receive Date: 20221223
  Receipt Date: 20250912
  Transmission Date: 20251021
  Serious: Yes (Life-Threatening, Hospitalization, Other)
  Sender: TEVA
  Company Number: None

PATIENT
  Age: 62 Year
  Sex: Male
  Weight: 60 kg

DRUGS (9)
  1. IRBESARTAN [Suspect]
     Active Substance: IRBESARTAN
     Indication: Product used for unknown indication
     Dosage: IN THE MORNING, IRBESARTAN TEVA
     Route: 065
  2. ASPIRIN [Interacting]
     Active Substance: ASPIRIN
     Indication: Product used for unknown indication
     Route: 065
  3. GINKGO [Concomitant]
     Active Substance: GINKGO
     Indication: Product used for unknown indication
     Dosage: 1 IN THE MORNING
     Dates: end: 202102
  4. SIMVASTATIN [Suspect]
     Active Substance: SIMVASTATIN
     Indication: Product used for unknown indication
     Dosage: 1 IN THE EVENING
     Route: 065
  5. VARENICLINE TARTRATE [Suspect]
     Active Substance: VARENICLINE TARTRATE
     Indication: Ex-tobacco user
     Route: 065
     Dates: start: 202006, end: 202105
  6. VALPROATE SODIUM [Interacting]
     Active Substance: VALPROATE SODIUM
     Indication: Seizure
     Dosage: 1 IN THE MORNING, 1 IN THE EVENING, 300
     Route: 065
     Dates: end: 20210526
  7. Alendronate EG [Concomitant]
     Indication: Product used for unknown indication
     Dosage: EVERY MONDAY
  8. Steovit Forte [Concomitant]
     Indication: Product used for unknown indication
     Dosage: 1 IN THE EVENING, ORANGE EFFERVESCENT TABLETS 1000 MG/880 I.E.
  9. MINERAL OIL EMULSION\PETROLATUM [Concomitant]
     Active Substance: MINERAL OIL EMULSION\PETROLATUM
     Indication: Product used for unknown indication
     Dosage: 2X/DAY

REACTIONS (3)
  - Autoimmune pancytopenia [Recovered/Resolved]
  - Vasculitis [Recovered/Resolved]
  - Drug interaction [Recovered/Resolved]

NARRATIVE: CASE EVENT DATE: 20210501
